FAERS Safety Report 23181808 (Version 2)
Quarter: 2023Q4

REPORT INFORMATION
  Report Type: Spontaneous
  Country: BR (occurrence: None)
  Receive Date: 20231114
  Receipt Date: 20231219
  Transmission Date: 20240109
  Serious: No
  Sender: FDA-Public Use
  Company Number: 2023A257144

PATIENT
  Age: 25908 Day
  Sex: Female
  Weight: 64 kg

DRUGS (10)
  1. BRILINTA [Suspect]
     Active Substance: TICAGRELOR
     Indication: Acute myocardial infarction
     Dosage: MORNING AND AT NIGHT
     Route: 048
     Dates: start: 20230810
  2. DAPAGLIFLOZIN [Suspect]
     Active Substance: DAPAGLIFLOZIN
     Indication: Cardiac disorder
     Dosage: ONCE
     Route: 048
     Dates: start: 20230813
  3. DAPAGLIFLOZIN [Suspect]
     Active Substance: DAPAGLIFLOZIN
     Indication: Diabetes mellitus
     Dosage: ONCE
     Route: 048
     Dates: start: 20230813
  4. METOPROLOL SUCCINATE [Suspect]
     Active Substance: METOPROLOL SUCCINATE
     Indication: Blood pressure fluctuation
     Dosage: ONCE
     Route: 048
     Dates: start: 20230813
  5. METOPROLOL SUCCINATE [Suspect]
     Active Substance: METOPROLOL SUCCINATE
     Indication: Cardiovascular event prophylaxis
     Dosage: ONCE
     Route: 048
     Dates: start: 20230813
  6. RAMIPRIL [Concomitant]
     Active Substance: RAMIPRIL
     Indication: Blood pressure fluctuation
     Dosage: ONCE
     Route: 048
     Dates: start: 20230813
  7. ASPIRIN\DIHYDROXYALUMINUM AMINOACETATE ANHYDROUS\MAGNESIUM CARBONATE [Concomitant]
     Active Substance: ASPIRIN\DIHYDROXYALUMINUM AMINOACETATE ANHYDROUS\MAGNESIUM CARBONATE
     Indication: Ischaemic heart disease prophylaxis
     Dosage: ONCE
     Route: 048
     Dates: start: 20230813
  8. EZETIMIBE\ROSUVASTATIN CALCIUM [Concomitant]
     Active Substance: EZETIMIBE\ROSUVASTATIN CALCIUM
     Indication: Blood cholesterol
     Dosage: ONCE
     Route: 048
     Dates: start: 20230813
  9. GLIFAGE [Concomitant]
     Active Substance: METFORMIN HYDROCHLORIDE
     Indication: Diabetes mellitus
     Dosage: ONCE
     Route: 048
     Dates: start: 20230813
  10. GLIFAGE [Concomitant]
     Active Substance: METFORMIN HYDROCHLORIDE
     Indication: Ischaemic heart disease prophylaxis
     Dosage: ONCE
     Route: 048
     Dates: start: 20230813

REACTIONS (6)
  - Blister [Not Recovered/Not Resolved]
  - Wound [Not Recovered/Not Resolved]
  - Oedema [Not Recovered/Not Resolved]
  - Pruritus [Unknown]
  - Hypersensitivity [Not Recovered/Not Resolved]
  - Dyspnoea [Not Recovered/Not Resolved]

NARRATIVE: CASE EVENT DATE: 20230830
